FAERS Safety Report 13602581 (Version 1)
Quarter: 2017Q2

REPORT INFORMATION
  Report Type: Spontaneous
  Country: NL (occurrence: NL)
  Receive Date: 20170601
  Receipt Date: 20170601
  Transmission Date: 20170830
  Serious: Yes (Hospitalization)
  Sender: FDA-Public Use
  Company Number: NL-TEVA-772213ACC

PATIENT
  Age: 62 Year
  Sex: Male

DRUGS (15)
  1. SIMVASTATINE [Concomitant]
     Active Substance: SIMVASTATIN
     Route: 048
  2. DIPYRIDAMOL CAPSULE MGA 200MG [Suspect]
     Active Substance: DIPYRIDAMOLE
     Dosage: 400 MILLIGRAM DAILY;
     Route: 048
     Dates: start: 20170320
  3. SAROTEX RETARD CAPSULE MGA 25MG PROLONGED-RELEASE CAPSULE [Concomitant]
     Route: 048
  4. CALCIUMCARB/COLECALC KAUWTB 1,25G/440IE (500MG CA) [Concomitant]
     Route: 048
  5. ACETYLSALICYLZUUR TABLET  80MG [Concomitant]
     Route: 048
  6. AVAMYS NEUSSPRAY 27,5MCG/DO FLACON 120DOSES [Concomitant]
     Active Substance: FLUTICASONE FUROATE
     Route: 045
  7. SPIRIVA INHALPDR 18MCG [Concomitant]
     Route: 055
  8. OMEPRAZOL [Concomitant]
     Active Substance: OMEPRAZOLE
     Route: 048
  9. AUGMENTIN TABLET 500/125MG [Concomitant]
     Route: 048
  10. PREDNISOLON [Concomitant]
     Active Substance: PREDNISOLONE
     Route: 048
  11. NITROGLYCERINE SPRAY SUBLING. 0,4MG/DO [Concomitant]
     Route: 048
  12. LISINOPRIL TABLET 10MG [Concomitant]
     Active Substance: LISINOPRIL
     Route: 048
  13. METOPROLOL TABLET MGA  50MG (SUCCINAAT) [Concomitant]
     Route: 048
  14. PARACETAMOL/CODEINE TABLET 500/20MG [Concomitant]
     Route: 048
  15. ATIMOS AEROSOL 12MCG/DOSIS SPUITBUS 100DO [Concomitant]
     Route: 055

REACTIONS (4)
  - Erythema [Unknown]
  - Swelling [Unknown]
  - Arthralgia [Unknown]
  - Therapeutic response unexpected [Unknown]

NARRATIVE: CASE EVENT DATE: 20170320
